FAERS Safety Report 10473743 (Version 1)
Quarter: 2014Q3

REPORT INFORMATION
  Report Type: Spontaneous
  Country: FR (occurrence: FR)
  Receive Date: 20140924
  Receipt Date: 20140924
  Transmission Date: 20150326
  Serious: Yes (Hospitalization)
  Sender: FDA-Public Use
  Company Number: FR-BRISTOL-MYERS SQUIBB COMPANY-21397625

PATIENT
  Age: 44 Year
  Sex: Female

DRUGS (19)
  1. TAZOCILLINE [Suspect]
     Active Substance: PIPERACILLIN SODIUM\TAZOBACTAM SODIUM
     Indication: DIABETIC FOOT
     Route: 042
     Dates: start: 20140802, end: 20140807
  2. OFLOCET [Concomitant]
     Active Substance: OFLOXACIN
     Indication: DIABETIC FOOT
  3. GENTAMICINE [Concomitant]
     Active Substance: GENTAMICIN
     Indication: DIABETIC FOOT
  4. ACTRAPID [Concomitant]
     Active Substance: INSULIN HUMAN
     Indication: DIABETES MELLITUS
  5. LYRICA [Concomitant]
     Active Substance: PREGABALIN
     Indication: NEURALGIA
  6. THERALENE [Concomitant]
     Active Substance: TRIMEPRAZINE
     Indication: SCHIZOPHRENIA
  7. XANAX [Concomitant]
     Active Substance: ALPRAZOLAM
     Indication: SCHIZOPHRENIA
  8. LEXOMIL [Concomitant]
     Active Substance: BROMAZEPAM
  9. LANTUS [Concomitant]
     Active Substance: INSULIN GLARGINE
     Indication: DIABETES MELLITUS
  10. DEPAKOTE [Concomitant]
     Active Substance: DIVALPROEX SODIUM
     Indication: SCHIZOPHRENIA
  11. TRANSIPEG [Concomitant]
     Active Substance: POLYETHYLENE GLYCOL 3350
  12. TAHOR [Concomitant]
     Active Substance: ATORVASTATIN CALCIUM
  13. PHENERGAN [Concomitant]
     Active Substance: PROMETHAZINE HYDROCHLORIDE
  14. CLINDAMYCIN [Concomitant]
     Active Substance: CLINDAMYCIN\CLINDAMYCIN PHOSPHATE
     Indication: DIABETIC FOOT
  15. LOXAPAC [Concomitant]
     Active Substance: LOXAPINE SUCCINATE
     Indication: SCHIZOPHRENIA
  16. EUPANTOL [Concomitant]
     Active Substance: PANTOPRAZOLE SODIUM
     Indication: SCHIZOPHRENIA
  17. AZACTAM [Suspect]
     Active Substance: AZTREONAM
     Indication: DIABETIC FOOT
     Route: 042
     Dates: start: 20140807, end: 20140808
  18. ZYVOXID [Suspect]
     Active Substance: LINEZOLID
     Indication: DIABETIC FOOT
     Route: 048
     Dates: start: 20140802, end: 20140808
  19. PERIDYS [Concomitant]
     Active Substance: DOMPERIDONE

REACTIONS (1)
  - Drug reaction with eosinophilia and systemic symptoms [Recovering/Resolving]

NARRATIVE: CASE EVENT DATE: 20140807
